FAERS Safety Report 11942759 (Version 1)
Quarter: 2016Q1

REPORT INFORMATION
  Report Type: Spontaneous
  Country: US (occurrence: US)
  Receive Date: 20160125
  Receipt Date: 20160125
  Transmission Date: 20160526
  Serious: No
  Sender: FDA-Public Use
  Company Number: US-UNITED THERAPEUTICS-UNT-2015-007546

PATIENT
  Age: 34 Year
  Sex: Male
  Weight: 85.81 kg

DRUGS (5)
  1. REMODULIN [Suspect]
     Active Substance: TREPROSTINIL
     Indication: PULMONARY HYPERTENSION
     Dosage: 0.0665 ?G/KG/MIN, CONTINUING
     Route: 058
     Dates: start: 20130730
  2. OPSUMIT [Suspect]
     Active Substance: MACITENTAN
     Indication: PRODUCT USED FOR UNKNOWN INDICATION
     Dosage: UNK
     Dates: start: 201505
  3. REMODULIN [Suspect]
     Active Substance: TREPROSTINIL
     Indication: SCLERODERMA
  4. REMODULIN [Suspect]
     Active Substance: TREPROSTINIL
     Indication: PULMONARY ARTERIAL HYPERTENSION
     Dosage: 0.068 ?G/KG/MIN, CONTINUING
     Route: 041
     Dates: start: 20150805
  5. ADCIRCA [Concomitant]
     Active Substance: TADALAFIL
     Indication: PRODUCT USED FOR UNKNOWN INDICATION

REACTIONS (9)
  - Nasal congestion [Unknown]
  - Infusion site bruising [Not Recovered/Not Resolved]
  - Wheezing [Unknown]
  - Pulmonary arterial hypertension [Unknown]
  - Device issue [Not Recovered/Not Resolved]
  - Injection site pain [Unknown]
  - Infusion site induration [Not Recovered/Not Resolved]
  - Dyspnoea [Unknown]
  - Infusion site pain [Not Recovered/Not Resolved]

NARRATIVE: CASE EVENT DATE: 20150604
